FAERS Safety Report 5794858-1 (Version None)
Quarter: 2008Q2

REPORT INFORMATION
  Report Type: 
  Country: None (occurrence: None)
  Receive Date: 20080626
  Receipt Date: 20080616
  Transmission Date: 20081010
  Serious: Yes (Other)
  Sender: FDA-Public Use
  Company Number: 2008PV000048

PATIENT
  Age: 42 Year
  Sex: Male

DRUGS (3)
  1. DEPOCYT [Suspect]
     Indication: METASTASES TO MENINGES
     Dosage: 50 MG;QW;INTH
     Route: 037
     Dates: start: 20071001, end: 20071201
  2. METHOTREXATE [Concomitant]
  3. IFOSFAMIDE [Concomitant]

REACTIONS (8)
  - DEMYELINATION [None]
  - DYSARTHRIA [None]
  - FALL [None]
  - FOOT FRACTURE [None]
  - GAIT DISTURBANCE [None]
  - GENERAL PHYSICAL HEALTH DETERIORATION [None]
  - MENTAL IMPAIRMENT [None]
  - PREMATURE AGEING [None]
